FAERS Safety Report 9640300 (Version 1)
Quarter: 2013Q4

REPORT INFORMATION
  Report Type: Spontaneous
  Country: US (occurrence: None)
  Receive Date: 20131022
  Receipt Date: 20131022
  Transmission Date: 20140711
  Serious: No
  Sender: FDA-Public Use
  Company Number: None

PATIENT
  Age: 74 Year
  Sex: Female
  Weight: 81.65 kg

DRUGS (20)
  1. VENLAFAXINE HCL [Suspect]
     Indication: HOT FLUSH
     Route: 048
     Dates: start: 20130815, end: 20130815
  2. SPRYCEL [Concomitant]
  3. LISINOPRIL [Concomitant]
  4. SIMVASTATIN [Concomitant]
  5. OXYBUTYNIN CLER [Concomitant]
  6. CARISOPRODOL [Concomitant]
  7. LASOPRAZOLE [Concomitant]
  8. BABY ASPIRIN [Concomitant]
  9. CALTRAFE (CA + VIT D) [Concomitant]
  10. STOOL SOFTENER [Concomitant]
  11. MIRALAX [Concomitant]
  12. BLACK COHOSH [Concomitant]
  13. ONDANSETRON ODT [Concomitant]
  14. ZOLPIDEM [Concomitant]
  15. OXYCONTIN [Concomitant]
  16. OXYCODONE-ACETAMINOPHEN [Concomitant]
  17. FLONASE [Concomitant]
  18. RESTASIS [Concomitant]
  19. PERIDEX [Concomitant]
  20. PROBILENT [Concomitant]

REACTIONS (5)
  - Retching [None]
  - Vomiting [None]
  - Flushing [None]
  - Asthenia [None]
  - Musculoskeletal disorder [None]
